FAERS Safety Report 8995164 (Version 1)
Quarter: 2012Q4

REPORT INFORMATION
  Report Type: Spontaneous
  Country: US (occurrence: None)
  Receive Date: 20121221
  Receipt Date: 20121221
  Transmission Date: 20130627
  Serious: Yes (Other)
  Sender: FDA-Public Use
  Company Number: 201212042

PATIENT
  Age: 63 Year
  Sex: Male

DRUGS (1)
  1. XIAFLEX [Suspect]
     Indication: DUPUYTREN^S CONTRACTURE
     Dosage: 1 in 1 D, Intralesional
     Dates: start: 201208, end: 201208

REACTIONS (3)
  - Skin exfoliation [None]
  - Injection site haemorrhage [None]
  - Skin graft [None]
